FAERS Safety Report 9303085 (Version 3)
Quarter: 2013Q3

REPORT INFORMATION
  Report Type: Spontaneous
  Country: JP (occurrence: JP)
  Receive Date: 20130522
  Receipt Date: 20130710
  Transmission Date: 20140515
  Serious: No
  Sender: FDA-Public Use
  Company Number: JP-B.I. PHARMACEUTICALS,INC./RIDGEFIELD-2013-BI-13409NB

PATIENT
  Age: 66 Year
  Sex: Male
  Weight: 56 kg

DRUGS (5)
  1. TRAZENTA [Suspect]
     Indication: DIABETES MELLITUS
     Dosage: 5 MG
     Route: 048
     Dates: start: 20130411, end: 20130423
  2. TENELIA [Suspect]
     Indication: DIABETES MELLITUS
     Dosage: 20 MG
     Route: 048
     Dates: start: 20130307, end: 20130411
  3. BASEN [Concomitant]
     Indication: DIABETES MELLITUS
     Dosage: 0.9 MG
     Route: 048
     Dates: start: 200602
  4. GLIMICRON [Concomitant]
     Indication: DIABETES MELLITUS
     Dosage: 160 MG
     Route: 048
     Dates: start: 20060217
  5. GLUTAMEAL [Concomitant]
     Indication: DIABETES MELLITUS
     Route: 048

REACTIONS (1)
  - Rash [Recovered/Resolved]
